FAERS Safety Report 4365463-9 (Version None)
Quarter: 2004Q2

REPORT INFORMATION
  Report Type: 
  Country: None (occurrence: None)
  Receive Date: 20040526
  Receipt Date: 20040519
  Transmission Date: 20050107
  Serious: Yes (Other)
  Sender: FDA-Public Use
  Company Number: GB-BRISTOL-MYERS SQUIBB COMPANY-12590329

PATIENT
  Age: 42 Year
  Sex: Male

DRUGS (2)
  1. SUSTIVA [Suspect]
     Indication: HIV INFECTION
     Dates: start: 20000101
  2. COMBIVIR [Suspect]
     Indication: HIV INFECTION
     Dates: start: 20000101

REACTIONS (1)
  - NEPHROLITHIASIS [None]
